FAERS Safety Report 24632631 (Version 3)
Quarter: 2024Q4

REPORT INFORMATION
  Report Type: Spontaneous
  Country: MX (occurrence: MX)
  Receive Date: 20241118
  Receipt Date: 20241126
  Transmission Date: 20250115
  Serious: Yes (Death, Hospitalization)
  Sender: NOVARTIS
  Company Number: MX-002147023-NVSC2024MX221166

PATIENT
  Age: 65 Year
  Sex: Male

DRUGS (5)
  1. AMLODIPINE BESYLATE\VALSARTAN [Suspect]
     Active Substance: AMLODIPINE BESYLATE\VALSARTAN
     Indication: Product used for unknown indication
     Dosage: UNK
     Route: 065
  2. ASPIRIN [Concomitant]
     Active Substance: ASPIRIN
     Indication: Product used for unknown indication
     Dosage: UNK
     Route: 065
  3. AMOXICILLIN [Concomitant]
     Active Substance: AMOXICILLIN
     Indication: Pharyngotonsillitis
     Dosage: UNK
     Route: 065
  4. NOREPINEPHRINE [Concomitant]
     Active Substance: NOREPINEPHRINE\NOREPINEPHRINE BITARTRATE
     Indication: Product used for unknown indication
     Dosage: UNK
     Route: 065
  5. HYDROCORTISONE [Concomitant]
     Active Substance: HYDROCORTISONE
     Indication: Product used for unknown indication
     Dosage: UNK
     Route: 065

REACTIONS (22)
  - Cardiac arrest [Fatal]
  - Heart rate abnormal [Unknown]
  - Blood pressure abnormal [Unknown]
  - Sinus tachycardia [Unknown]
  - Electrocardiogram ST segment elevation [Unknown]
  - Leukocytosis [Unknown]
  - Pleural effusion [Unknown]
  - Mediastinal disorder [Unknown]
  - Staphylococcal bacteraemia [Unknown]
  - Mediastinitis [Unknown]
  - Cardiac steatosis [Unknown]
  - Aortic necrosis [Unknown]
  - Subcutaneous emphysema [Unknown]
  - Tidal volume decreased [Unknown]
  - Bronchial fistula [Unknown]
  - Hypoxia [Unknown]
  - Hypercapnia [Unknown]
  - Haemodynamic instability [Unknown]
  - Thrombocytopenia [Unknown]
  - Tracheal injury [Unknown]
  - Upper airway necrosis [Unknown]
  - Pulmonary air leakage [Unknown]
